FAERS Safety Report 7082916-3 (Version None)
Quarter: 2010Q4

REPORT INFORMATION
  Report Type: 
  Country: None (occurrence: None)
  Receive Date: 20101104
  Receipt Date: 20101027
  Transmission Date: 20110411
  Serious: Yes (Hospitalization)
  Sender: FDA-Public Use
  Company Number: PHHO2010KR11157

PATIENT
  Sex: Male
  Weight: 75.1 kg

DRUGS (2)
  1. AFINITOR [Suspect]
     Indication: SMALL CELL LUNG CANCER STAGE UNSPECIFIED
     Dosage: UNK
     Route: 048
     Dates: start: 20100715
  2. PACLITAXEL COMP-PAC+ [Suspect]
     Indication: SMALL CELL LUNG CANCER STAGE UNSPECIFIED
     Dosage: UNK
     Dates: start: 20100715

REACTIONS (6)
  - COUGH [None]
  - FEBRILE NEUTROPENIA [None]
  - PNEUMONIA [None]
  - RALES [None]
  - SEPSIS [None]
  - THROMBOCYTOPENIA [None]
